FAERS Safety Report 9654404 (Version 1)
Quarter: 2013Q4

REPORT INFORMATION
  Report Type: Spontaneous
  Country: US (occurrence: None)
  Receive Date: 20131021
  Receipt Date: 20131021
  Transmission Date: 20140711
  Serious: Yes (Hospitalization)
  Sender: FDA-Public Use
  Company Number: 2013038435

PATIENT
  Age: 84 Year
  Sex: Male

DRUGS (1)
  1. ZEMAIRA [Suspect]

REACTIONS (2)
  - Cardiac disorder [None]
  - Lung disorder [None]
